FAERS Safety Report 7651797-9 (Version None)
Quarter: 2011Q3

REPORT INFORMATION
  Report Type: 
  Country: None (occurrence: None)
  Receive Date: 20110802
  Receipt Date: 20090325
  Transmission Date: 20111222
  Serious: Yes (Death)
  Sender: FDA-Public Use
  Company Number: PHHY2009JP03937

PATIENT
  Sex: Female
  Weight: 36 kg

DRUGS (11)
  1. PROCHLORPERAZINE [Concomitant]
     Dosage: 5 MG,/DAY
     Route: 048
     Dates: start: 20080222, end: 20080423
  2. FEMARA [Suspect]
     Indication: BREAST CANCER
     Dosage: 2.5 MG PER DAY
     Route: 048
     Dates: start: 20080215, end: 20080423
  3. MITOMYCIN [Concomitant]
     Dates: start: 20071030, end: 20080115
  4. FAMOTIDINE [Concomitant]
     Dosage: 20 MG/DAY
     Route: 048
     Dates: start: 20080222, end: 20080423
  5. LASIX [Concomitant]
     Dosage: 20 MG/DAY
     Route: 048
     Dates: start: 20080222, end: 20080423
  6. LOXONIN [Concomitant]
     Dosage: 180 MG/DAY
     Route: 048
     Dates: start: 20080222, end: 20080423
  7. MAGNESIUM OXIDE [Concomitant]
     Dosage: 1.5 G/DAY
     Route: 048
     Dates: start: 20080222, end: 20080423
  8. MORPHINE SULFATE [Concomitant]
     Dosage: 60 MG/DAY
     Route: 048
     Dates: start: 20080222, end: 20080423
  9. BETAMETHASONE [Concomitant]
     Dosage: 1 MG/DAY
     Route: 048
     Dates: start: 20080222, end: 20080423
  10. METHOTREXATE [Concomitant]
     Dates: start: 20071030, end: 20080115
  11. MORPHINE [Concomitant]
     Route: 048
     Dates: start: 20080222, end: 20080423

REACTIONS (2)
  - NEOPLASM PROGRESSION [None]
  - NEOPLASM MALIGNANT [None]
